FAERS Safety Report 9058564 (Version 3)
Quarter: 2014Q1

REPORT INFORMATION
  Report Type: Spontaneous
  Country: DE (occurrence: DE)
  Receive Date: 20130211
  Receipt Date: 20140225
  Transmission Date: 20141002
  Serious: Yes (Other)
  Sender: FDA-Public Use
  Company Number: PHHY2013DE012593

PATIENT
  Sex: Male

DRUGS (1)
  1. DIOVAN [Suspect]
     Dosage: (MATERNAL DOSE: 40 MG DAILY)
     Route: 064

REACTIONS (11)
  - Ventricular septal defect [Unknown]
  - Patent ductus arteriosus [Unknown]
  - Congenital cystic kidney disease [Unknown]
  - Renal dysplasia [Unknown]
  - Bladder dysplasia [Unknown]
  - Renal tubular disorder [Unknown]
  - Premature baby [Unknown]
  - Renal failure [Unknown]
  - Anuria [Unknown]
  - Large for dates baby [Unknown]
  - Foetal exposure during pregnancy [Unknown]
